FAERS Safety Report 9736189 (Version 1)
Quarter: 2013Q4

REPORT INFORMATION
  Report Type: Spontaneous
  Country: US (occurrence: US)
  Receive Date: 20131206
  Receipt Date: 20131206
  Transmission Date: 20140711
  Serious: Yes (Hospitalization)
  Sender: FDA-Public Use
  Company Number: US-UCBSA-104517

PATIENT
  Sex: Male
  Weight: 83.91 kg

DRUGS (3)
  1. VIMPAT [Suspect]
     Indication: CONVULSION
  2. LAMICTAL [Concomitant]
     Indication: CONVULSION
     Dosage: AT NIGHT, 500 MG,1.5 YEARS
  3. LAMICTAL [Concomitant]
     Indication: CONVULSION

REACTIONS (5)
  - Grand mal convulsion [Recovered/Resolved]
  - Viral infection [Unknown]
  - Fall [Recovering/Resolving]
  - Eye contusion [Recovering/Resolving]
  - Contusion [Recovering/Resolving]
